FAERS Safety Report 25624733 (Version 2)
Quarter: 2025Q3

REPORT INFORMATION
  Report Type: Spontaneous
  Country: EU (occurrence: EU)
  Receive Date: 20250730
  Receipt Date: 20250811
  Transmission Date: 20251021
  Serious: Yes (Disabling)
  Sender: CELLTRION
  Company Number: EU-KERNPHARMA-202501285

PATIENT

DRUGS (6)
  1. TOCILIZUMAB [Suspect]
     Active Substance: TOCILIZUMAB
     Indication: Peripheral ischaemia
  2. TOCILIZUMAB [Suspect]
     Active Substance: TOCILIZUMAB
     Indication: Peripheral ischaemia
  3. PREDNISONE [Suspect]
     Active Substance: PREDNISONE
     Indication: Peripheral ischaemia
  4. METHOTREXATE [Suspect]
     Active Substance: METHOTREXATE
     Indication: Peripheral ischaemia
  5. ALPROSTADIL [Suspect]
     Active Substance: ALPROSTADIL
     Indication: Peripheral ischaemia
  6. ASPIRIN [Suspect]
     Active Substance: ASPIRIN
     Indication: Peripheral ischaemia

REACTIONS (3)
  - Arm amputation [Not Recovered/Not Resolved]
  - Drug ineffective [Unknown]
  - Intentional product use issue [Unknown]
